FAERS Safety Report 8215828-X (Version None)
Quarter: 2012Q1

REPORT INFORMATION
  Report Type: 
  Country: None (occurrence: None)
  Receive Date: 20120316
  Receipt Date: 20120308
  Transmission Date: 20120608
  Serious: Yes (Other)
  Sender: FDA-Public Use
  Company Number: US-JNJFOC-20120305548

PATIENT
  Sex: Female
  Weight: 68.04 kg

DRUGS (8)
  1. LISINOPRIL [Suspect]
     Indication: BLOOD PRESSURE
     Route: 048
     Dates: end: 20110101
  2. PREDNISONE [Suspect]
     Indication: URTICARIA
     Route: 065
     Dates: start: 20111101, end: 20110101
  3. STEROID INJECTION NOS [Suspect]
     Indication: BACK INJURY
     Route: 008
     Dates: start: 19960101, end: 20040101
  4. CAPSAICIN [Suspect]
     Indication: SPINAL DISORDER
     Route: 065
  5. UNSPECIFIED ANTIDEPRESSANTS [Suspect]
     Indication: DEPRESSION
     Route: 065
  6. LOVASTATIN [Concomitant]
     Indication: BLOOD CHOLESTEROL
     Route: 065
  7. TOPAMAX [Suspect]
     Indication: CONVULSION
     Route: 065
  8. FENOFIBRATE [Suspect]
     Indication: BLOOD TRIGLYCERIDES INCREASED
     Route: 065
     Dates: start: 20110901, end: 20111101

REACTIONS (6)
  - RECTOCELE [None]
  - BLOOD TRIGLYCERIDES INCREASED [None]
  - BLOOD PRESSURE FLUCTUATION [None]
  - CATARACT [None]
  - CYSTOCELE [None]
  - OEDEMA PERIPHERAL [None]
